FAERS Safety Report 6088220-4 (Version None)
Quarter: 2009Q1

REPORT INFORMATION
  Report Type: 
  Country: None (occurrence: None)
  Receive Date: 20090224
  Receipt Date: 20090123
  Transmission Date: 20090719
  Serious: No
  Sender: FDA-Public Use
  Company Number: US-BAYER-200814240BCC

PATIENT
  Age: 72 Year
  Sex: Female
  Weight: 76 kg

DRUGS (10)
  1. ALEVE [Suspect]
     Indication: ARTHRALGIA
     Dosage: TOTAL DAILY DOSE: 440 MG  UNIT DOSE: 220 MG
     Route: 048
     Dates: start: 20080601
  2. ALEVE [Suspect]
     Dosage: TOTAL DAILY DOSE: 440 MG  UNIT DOSE: 220 MG
     Route: 048
     Dates: start: 20080601
  3. CENTRUM [Concomitant]
  4. SIMPLY SLEEP [Concomitant]
  5. COSAMIN DS [Concomitant]
     Dates: start: 20070101
  6. HIGH V CALCIUM [Concomitant]
  7. STOOL SOFTENER [Concomitant]
  8. CALTRATE 600 PLUS D [Concomitant]
  9. TYLENOL [Concomitant]
  10. CRANBERRY [Concomitant]

REACTIONS (2)
  - DIZZINESS [None]
  - FALL [None]
